FAERS Safety Report 5871273-3 (Version None)
Quarter: 2008Q3

REPORT INFORMATION
  Report Type: 
  Country: None (occurrence: None)
  Receive Date: 20080904
  Receipt Date: 20080904
  Transmission Date: 20090109
  Serious: Yes (Other)
  Sender: FDA-Public Use
  Company Number: None

PATIENT
  Age: 17 Year
  Sex: Female

DRUGS (2)
  1. ATRALIN [Suspect]
     Indication: ACNE
     Dosage: QHS TO FACE
     Dates: start: 20080619, end: 20080811
  2. DOXY [Concomitant]

REACTIONS (1)
  - URTICARIA [None]
